FAERS Safety Report 7383324-8 (Version None)
Quarter: 2011Q1

REPORT INFORMATION
  Report Type: 
  Country: None (occurrence: None)
  Receive Date: 20110325
  Receipt Date: 20110325
  Transmission Date: 20110831
  Serious: Yes (Hospitalization)
  Sender: FDA-Public Use
  Company Number: None

PATIENT
  Age: 45 Year
  Sex: Male
  Weight: 73.8 kg

DRUGS (5)
  1. DIGOXIN [Suspect]
     Indication: CARDIAC DISORDER
     Dosage: 1MG TOTAL 4 LOADING DOSE IV RECENT
     Route: 042
  2. MIDODRINE HYDROCHLORIDE [Concomitant]
  3. NEPHRO-VITE [Concomitant]
  4. PERCOCET [Concomitant]
  5. RENAGEL [Concomitant]

REACTIONS (5)
  - ATRIOVENTRICULAR BLOCK [None]
  - UNRESPONSIVE TO STIMULI [None]
  - ACIDOSIS [None]
  - CARDIO-RESPIRATORY ARREST [None]
  - TACHYPNOEA [None]
